FAERS Safety Report 19775612 (Version 2)
Quarter: 2021Q3

REPORT INFORMATION
  Report Type: Report from Study
  Country: AT (occurrence: AT)
  Receive Date: 20210901
  Receipt Date: 20210924
  Transmission Date: 20211014
  Serious: Yes (Hospitalization)
  Sender: FDA-Public Use
  Company Number: AT-AMGEN-AUTNI2021132415

PATIENT
  Age: 67 Year
  Sex: Male

DRUGS (10)
  1. PROFENID [Concomitant]
     Active Substance: KETOPROFEN
     Dosage: 100 MILLIGRAM, BID
  2. METAGELAN [Concomitant]
     Active Substance: DIPYRONE
     Dosage: 40 GRAM, QID
  3. PREGABALIN. [Concomitant]
     Active Substance: PREGABALIN
     Dosage: 150 MILLIGRAM, BID
  4. THROMBO ASS [Concomitant]
     Active Substance: ASPIRIN
     Dosage: 100 MILLIGRAM, QD
  5. VASTAREL [Concomitant]
     Active Substance: TRIMETAZIDINE DIHYDROCHLORIDE
     Dosage: 36 MILLIGRAM, BID
  6. AMG 510 [Suspect]
     Active Substance: AMG-510
     Indication: NON-SMALL CELL LUNG CANCER
     Dosage: 960 MILLIGRAM, QD
     Route: 065
     Dates: start: 20210726
  7. GLUCOPHAGE [Concomitant]
     Active Substance: METFORMIN HYDROCHLORIDE
     Dosage: 500 MILLIGRAM, BID
  8. ESOMEPRAZOL [ESOMEPRAZOLE] [Concomitant]
     Active Substance: ESOMEPRAZOLE
     Dosage: 10 MILLIGRAM, QD
  9. DRONABINOL. [Concomitant]
     Active Substance: DRONABINOL
     Dosage: 5 GRAM, TID
  10. XANOR [Concomitant]
     Active Substance: ALPRAZOLAM
     Dosage: 0.5 MILLIGRAM, QD

REACTIONS (1)
  - Night sweats [Recovered/Resolved]

NARRATIVE: CASE EVENT DATE: 20210820
